FAERS Safety Report 14378079 (Version 5)
Quarter: 2019Q2

REPORT INFORMATION
  Report Type: Report from Study
  Country: US (occurrence: US)
  Receive Date: 20180111
  Receipt Date: 20190403
  Transmission Date: 20190711
  Serious: Yes (Other)
  Sender: FDA-Public Use
  Company Number: PHEH2018US001511

PATIENT
  Sex: Female

DRUGS (2)
  1. GILENYA [Suspect]
     Active Substance: FINGOLIMOD HYDROCHLORIDE
     Dosage: UNK
     Route: 065
     Dates: start: 20170710
  2. GILENYA [Suspect]
     Active Substance: FINGOLIMOD HYDROCHLORIDE
     Indication: MULTIPLE SCLEROSIS
     Dosage: 0.5 MG, QD
     Route: 048
     Dates: start: 20170501

REACTIONS (9)
  - Pollakiuria [Unknown]
  - Multiple sclerosis relapse [Recovering/Resolving]
  - Malaise [Unknown]
  - Hair texture abnormal [Unknown]
  - White blood cell count decreased [Recovering/Resolving]
  - Pneumonia [Unknown]
  - Alopecia [Unknown]
  - Hemiparesis [Recovering/Resolving]
  - Influenza like illness [Unknown]

NARRATIVE: CASE EVENT DATE: 2017
